FAERS Safety Report 23057937 (Version 2)
Quarter: 2023Q4

REPORT INFORMATION
  Report Type: Spontaneous
  Country: SK (occurrence: SK)
  Receive Date: 20231012
  Receipt Date: 20231017
  Transmission Date: 20240110
  Serious: Yes (Death, Other)
  Sender: FDA-Public Use
  Company Number: SK-HALEON-SKCH2023EME048411

PATIENT

DRUGS (1)
  1. FLUTICASONE PROPIONATE [Suspect]
     Active Substance: FLUTICASONE PROPIONATE
     Indication: Product used for unknown indication
     Dosage: UNK

REACTIONS (3)
  - Cytomegalovirus infection [Fatal]
  - Aspergillus infection [Fatal]
  - Interstitial lung disease [Unknown]
